FAERS Safety Report 9148442 (Version 3)
Quarter: 2013Q2

REPORT INFORMATION
  Report Type: Spontaneous
  Country: CN (occurrence: CN)
  Receive Date: 20130308
  Receipt Date: 20130513
  Transmission Date: 20140414
  Serious: Yes (Hospitalization)
  Sender: FDA-Public Use
  Company Number: PHHY2013CN022484

PATIENT
  Age: 76 Year
  Sex: Female
  Weight: 69 kg

DRUGS (2)
  1. MIACALCIC [Suspect]
     Indication: OSTEOPOROSIS
     Dosage: 1 OR 2 DOSE ONCE PER DAY
     Route: 030
     Dates: start: 20130115
  2. MIACALCIC [Suspect]
     Dosage: UNK UKN, UNK
     Route: 030
     Dates: start: 201302, end: 20130221

REACTIONS (5)
  - Gastrointestinal haemorrhage [Recovered/Resolved]
  - Epistaxis [Recovered/Resolved]
  - Dry mouth [Recovered/Resolved]
  - Haemoglobin decreased [Recovered/Resolved]
  - Vision blurred [Recovered/Resolved]
